FAERS Safety Report 11789673 (Version 2)
Quarter: 2015Q4

REPORT INFORMATION
  Report Type: Report from Study
  Country: US (occurrence: US)
  Receive Date: 20151201
  Receipt Date: 20151216
  Transmission Date: 20160305
  Serious: Yes (Death, Hospitalization)
  Sender: FDA-Public Use
  Company Number: US-BAYER-2015-365540

PATIENT
  Age: 42 Year
  Sex: Male
  Weight: 71.66 kg

DRUGS (6)
  1. ADEMPAS [Suspect]
     Active Substance: RIOCIGUAT
     Indication: PULMONARY HYPERTENSION
     Dosage: 1 MG, TID
     Route: 048
  2. ADEMPAS [Suspect]
     Active Substance: RIOCIGUAT
     Indication: PULMONARY HYPERTENSION
     Dosage: UNK
     Route: 048
     Dates: start: 20150317
  3. TRACLEER [Concomitant]
     Active Substance: BOSENTAN
     Dosage: UNK
  4. TREPROSTINIL [Concomitant]
     Active Substance: TREPROSTINIL
  5. COUMADIN [Concomitant]
     Active Substance: WARFARIN SODIUM
     Dosage: UNK
  6. ADEMPAS [Suspect]
     Active Substance: RIOCIGUAT
     Indication: PULMONARY HYPERTENSION
     Dosage: 0.5 MG, TID
     Route: 048

REACTIONS (13)
  - Hospitalisation [None]
  - Fatigue [None]
  - Malaise [Unknown]
  - Localised oedema [Unknown]
  - Fluid overload [Unknown]
  - Heart disease congenital [Fatal]
  - Cardiac failure congestive [Unknown]
  - Haemoptysis [Unknown]
  - Epistaxis [None]
  - Dyspnoea [Unknown]
  - Dizziness [None]
  - Hospitalisation [Unknown]
  - Oedema [Unknown]

NARRATIVE: CASE EVENT DATE: 20150819
